FAERS Safety Report 11246932 (Version 1)
Quarter: 2015Q3

REPORT INFORMATION
  Report Type: Spontaneous
  Country: JP (occurrence: JP)
  Receive Date: 20150708
  Receipt Date: 20150708
  Transmission Date: 20151125
  Serious: Yes (Hospitalization, Other)
  Sender: FDA-Public Use
  Company Number: JP-SUN PHARMACEUTICAL INDUSTRIES LTD-2015RR-099931

PATIENT

DRUGS (2)
  1. OLANZAPINE. [Suspect]
     Active Substance: OLANZAPINE
     Indication: SCHIZOPHRENIA
     Dosage: 20 MG, DAILY, FOR 4 YEARS
     Route: 065
  2. OLANZAPINE. [Suspect]
     Active Substance: OLANZAPINE
     Indication: SCHIZOPHRENIA
     Dosage: 30 MG, DAILY
     Route: 065

REACTIONS (4)
  - Dumping syndrome [Recovering/Resolving]
  - Pancreatic enzyme abnormality [Recovering/Resolving]
  - Hyperinsulinaemia [Recovering/Resolving]
  - Hypoglycaemia [Recovering/Resolving]
